FAERS Safety Report 17238935 (Version 1)
Quarter: 2020Q1

REPORT INFORMATION
  Report Type: Spontaneous
  Country: US (occurrence: US)
  Receive Date: 20200106
  Receipt Date: 20200106
  Transmission Date: 20200409
  Serious: No
  Sender: FDA-Public Use
  Company Number: US-SA-2020SA002588

PATIENT
  Age: 74 Year
  Sex: Female

DRUGS (2)
  1. OZEMPIC [Suspect]
     Active Substance: SEMAGLUTIDE
  2. PRALUENT [Suspect]
     Active Substance: ALIROCUMAB
     Indication: HYPERCHOLESTEROLAEMIA
     Dosage: 1 ML, QOW
     Route: 058
     Dates: start: 20190914

REACTIONS (4)
  - Diarrhoea [Unknown]
  - Malaise [Unknown]
  - Laryngitis [Unknown]
  - Influenza [Unknown]

NARRATIVE: CASE EVENT DATE: 20191231
